FAERS Safety Report 20862945 (Version 1)
Quarter: 2022Q2

REPORT INFORMATION
  Report Type: Spontaneous
  Country: US (occurrence: US)
  Receive Date: 20220523
  Receipt Date: 20220523
  Transmission Date: 20220720
  Serious: No
  Sender: FDA-Public Use
  Company Number: US-BRISTOL-MYERS SQUIBB COMPANY-2022-044376

PATIENT
  Age: 54 Year
  Sex: Female
  Weight: 87.54 kg

DRUGS (6)
  1. REVLIMID [Suspect]
     Active Substance: LENALIDOMIDE
     Indication: Plasma cell myeloma
     Dosage: DOSE : 25 MG;     FREQ : 21 DAYS ON 7 DAYS OFF?1 CAPSULE BY MOUTH
  2. DEXAMETHASONE [Concomitant]
     Active Substance: DEXAMETHASONE
     Indication: Plasma cell myeloma
  3. TRAMADOL [Concomitant]
     Active Substance: TRAMADOL
     Indication: Plasma cell myeloma
  4. LORAZEPAM [Concomitant]
     Active Substance: LORAZEPAM
     Indication: Plasma cell myeloma
  5. LEVOTHYROXINE [Concomitant]
     Active Substance: LEVOTHYROXINE
     Indication: Plasma cell myeloma
  6. HYDROCHLOROTHIAZIDE [Concomitant]
     Active Substance: HYDROCHLOROTHIAZIDE
     Indication: Plasma cell myeloma

REACTIONS (2)
  - Rash erythematous [Unknown]
  - Hypersensitivity [Unknown]

NARRATIVE: CASE EVENT DATE: 20220401
